FAERS Safety Report 25401479 (Version 1)
Quarter: 2025Q2

REPORT INFORMATION
  Report Type: Spontaneous
  Country: US (occurrence: None)
  Receive Date: 20250604
  Receipt Date: 20250604
  Transmission Date: 20250716
  Serious: Yes (Other)
  Sender: FDA-CTU
  Company Number: None

PATIENT
  Age: 52 Year
  Sex: Female

DRUGS (1)
  1. AJOVY [Suspect]
     Active Substance: FREMANEZUMAB-VFRM
     Indication: Migraine
     Route: 058
     Dates: start: 20250310, end: 20250604

REACTIONS (3)
  - Injection site erythema [None]
  - Injection site pruritus [None]
  - Headache [None]

NARRATIVE: CASE EVENT DATE: 20250604
